FAERS Safety Report 5876265-6 (Version None)
Quarter: 2008Q3

REPORT INFORMATION
  Report Type: 
  Country: None (occurrence: None)
  Receive Date: 20080910
  Receipt Date: 20080718
  Transmission Date: 20090109
  Serious: Yes (Other)
  Sender: FDA-Public Use
  Company Number: US-PURDUE-USA_2008_0034511

PATIENT
  Sex: Male

DRUGS (3)
  1. OXYCONTIN [Suspect]
     Indication: PAIN
     Dosage: 40 MG, BID
     Route: 048
     Dates: start: 20000928, end: 20001001
  2. METFORMIN HCL [Concomitant]
     Indication: DRUG USE FOR UNKNOWN INDICATION
     Dosage: 500 MG, BID
     Route: 048
  3. ALBUTEROL [Concomitant]
     Indication: ASTHMA
     Dosage: 4 MG, UNK
     Route: 048

REACTIONS (16)
  - ANXIETY [None]
  - DECREASED INTEREST [None]
  - DEHYDRATION [None]
  - DEPRESSION [None]
  - DIARRHOEA [None]
  - DRUG DEPENDENCE [None]
  - INSOMNIA [None]
  - LOSS OF LIBIDO [None]
  - NAUSEA [None]
  - PAIN [None]
  - PARANOIA [None]
  - SELF ESTEEM DECREASED [None]
  - SOCIAL AVOIDANT BEHAVIOUR [None]
  - SUICIDAL IDEATION [None]
  - VOMITING [None]
  - WEIGHT DECREASED [None]
